FAERS Safety Report 24783410 (Version 1)
Quarter: 2024Q4

REPORT INFORMATION
  Report Type: Spontaneous
  Country: US (occurrence: None)
  Receive Date: 20241227
  Receipt Date: 20241227
  Transmission Date: 20250115
  Serious: Yes (Hospitalization)
  Sender: Public
  Company Number: None

PATIENT
  Age: 72 Year
  Sex: Female

DRUGS (2)
  1. TAVNEOS [Suspect]
     Active Substance: AVACOPAN
     Dosage: FREQUENCY : TWICE A DAY;?
     Route: 048
     Dates: start: 20240409
  2. TAVNEOS [Concomitant]
     Active Substance: AVACOPAN
     Dates: start: 20240409

REACTIONS (2)
  - Hypophagia [None]
  - Product dose omission in error [None]

NARRATIVE: CASE EVENT DATE: 20241226
